FAERS Safety Report 23596078 (Version 1)
Quarter: 2024Q1

REPORT INFORMATION
  Report Type: Spontaneous
  Country: CN (occurrence: CN)
  Receive Date: 20240305
  Receipt Date: 20240305
  Transmission Date: 20240410
  Serious: Yes (Other)
  Sender: FDA-Public Use
  Company Number: CN-Jiangsu Hansoh Pharmaceutical Co., Ltd-2154023

PATIENT
  Age: 47 Year
  Sex: Female
  Weight: 56 kg

DRUGS (4)
  1. VINORELBINE TARTRATE [Suspect]
     Active Substance: VINORELBINE TARTRATE
     Route: 041
     Dates: start: 20240120, end: 20240219
  2. TRASTUZUMAB [Suspect]
     Active Substance: TRASTUZUMAB
     Route: 041
     Dates: start: 20240120, end: 20240219
  3. Kanlalte injection [Concomitant]
     Dates: start: 20240119, end: 20240219
  4. PYROTINIB MALEATE [Suspect]
     Active Substance: PYROTINIB MALEATE
     Route: 048
     Dates: start: 20240120, end: 20240219

REACTIONS (1)
  - Liver injury [Recovering/Resolving]

NARRATIVE: CASE EVENT DATE: 20240121
